FAERS Safety Report 10994861 (Version 3)
Quarter: 2017Q1

REPORT INFORMATION
  Report Type: Report from Study
  Country: US (occurrence: US)
  Receive Date: 20150407
  Receipt Date: 20170222
  Transmission Date: 20170428
  Serious: Yes (Other)
  Sender: FDA-Public Use
  Company Number: PHEH2015US006272

PATIENT
  Age: 56 Year
  Sex: Female
  Weight: 75.28 kg

DRUGS (19)
  1. BACLOFEN. [Suspect]
     Active Substance: BACLOFEN
     Indication: PRODUCT USED FOR UNKNOWN INDICATION
     Route: 065
  2. SINGULAIR [Concomitant]
     Active Substance: MONTELUKAST SODIUM
     Indication: PRODUCT USED FOR UNKNOWN INDICATION
     Dosage: 10 MG, QHS
     Route: 048
  3. VITAMIN B12 [Concomitant]
     Active Substance: CYANOCOBALAMIN
     Indication: PRODUCT USED FOR UNKNOWN INDICATION
     Dosage: 1000 UG, QD
     Route: 048
  4. VENTOLIN HFA [Concomitant]
     Active Substance: ALBUTEROL SULFATE
     Indication: PRODUCT USED FOR UNKNOWN INDICATION
     Dosage: 1 DF (PUFF), PRN
     Route: 055
  5. LIORESAL [Concomitant]
     Active Substance: BACLOFEN
     Indication: PRODUCT USED FOR UNKNOWN INDICATION
     Dosage: 10 MG, UNK
     Route: 065
  6. PROBIOTIC [Concomitant]
     Active Substance: PROBIOTICS NOS
     Indication: PRODUCT USED FOR UNKNOWN INDICATION
     Dosage: QD
     Route: 048
  7. ZYRTEC [Concomitant]
     Active Substance: CETIRIZINE HYDROCHLORIDE
     Indication: PRODUCT USED FOR UNKNOWN INDICATION
     Dosage: 10 MG, QD
     Route: 048
  8. ASMANEX [Concomitant]
     Active Substance: MOMETASONE FUROATE
     Indication: PRODUCT USED FOR UNKNOWN INDICATION
     Dosage: 110 MCG/INH (1 PUFF), QD
     Route: 055
  9. TYLENOL ARTHRITIS PAIN [Concomitant]
     Active Substance: ACETAMINOPHEN
     Indication: PRODUCT USED FOR UNKNOWN INDICATION
     Dosage: 1-2 DF, QD
     Route: 048
  10. FLONASE [Concomitant]
     Active Substance: FLUTICASONE PROPIONATE
     Indication: PRODUCT USED FOR UNKNOWN INDICATION
     Dosage: 20 MCG/ML, UNK
     Route: 055
  11. DIGESTIVE ENZYMES [Concomitant]
     Active Substance: UNSPECIFIED INGREDIENT
     Indication: PRODUCT USED FOR UNKNOWN INDICATION
     Dosage: UNK
     Route: 048
  12. BENADRYL [Concomitant]
     Active Substance: DIPHENHYDRAMINE HYDROCHLORIDE
     Indication: PRODUCT USED FOR UNKNOWN INDICATION
     Dosage: 50 MG, QD
     Route: 048
  13. 4-AMINOPYRIDINE [Concomitant]
     Active Substance: DALFAMPRIDINE
     Indication: PRODUCT USED FOR UNKNOWN INDICATION
     Dosage: 1 DF, BID
     Route: 048
  14. VITAMIN D3 [Concomitant]
     Active Substance: CHOLECALCIFEROL
     Indication: PRODUCT USED FOR UNKNOWN INDICATION
     Dosage: 1 DF, QD
     Route: 048
  15. EPIPEN [Concomitant]
     Active Substance: EPINEPHRINE
     Indication: PRODUCT USED FOR UNKNOWN INDICATION
     Dosage: 0.3 ML, PRN
     Route: 030
  16. GILENYA [Suspect]
     Active Substance: FINGOLIMOD HYDROCHLORIDE
     Indication: RELAPSING-REMITTING MULTIPLE SCLEROSIS
     Dosage: 0.5 MG, QD
     Route: 048
     Dates: start: 20141009
  17. AMPYRA [Concomitant]
     Active Substance: DALFAMPRIDINE
     Indication: PRODUCT USED FOR UNKNOWN INDICATION
     Dosage: 10 M, UNK
     Route: 048
  18. MULTI VITAMIN [Concomitant]
     Active Substance: VITAMINS
     Indication: PRODUCT USED FOR UNKNOWN INDICATION
     Route: 048
  19. ATIVAN [Concomitant]
     Active Substance: LORAZEPAM
     Indication: PRODUCT USED FOR UNKNOWN INDICATION
     Dosage: 1 MG, UNK
     Route: 065

REACTIONS (52)
  - Neck pain [Recovered/Resolved]
  - Ataxia [Unknown]
  - Muscle rigidity [Unknown]
  - Memory impairment [Unknown]
  - Hot flush [Unknown]
  - Tremor [Unknown]
  - Somnolence [Unknown]
  - Sinus disorder [Unknown]
  - Muscular weakness [Unknown]
  - Headache [Recovered/Resolved]
  - Restless legs syndrome [Recovered/Resolved]
  - Vertigo [Unknown]
  - Insomnia [Recovered/Resolved]
  - Colour blindness [Unknown]
  - Bradykinesia [Unknown]
  - Chest pain [Recovered/Resolved]
  - Eye pain [Recovered/Resolved]
  - Abdominal pain [Recovered/Resolved]
  - Vision blurred [Unknown]
  - Alanine aminotransferase increased [Unknown]
  - Dysarthria [Recovering/Resolving]
  - Arthralgia [Unknown]
  - Influenza like illness [Unknown]
  - Resting tremor [Unknown]
  - Speech disorder [Unknown]
  - Dysphagia [Unknown]
  - Malaise [Unknown]
  - Asthenia [Unknown]
  - Libido decreased [Recovered/Resolved]
  - Anxiety [Unknown]
  - Muscle spasms [Unknown]
  - Constipation [Recovered/Resolved]
  - Temperature intolerance [Unknown]
  - Lymphocyte count decreased [Unknown]
  - Tinnitus [Unknown]
  - Blood urea increased [Unknown]
  - Urinary incontinence [Recovered/Resolved]
  - Blindness [Unknown]
  - Paraesthesia [Unknown]
  - Dyskinesia [Unknown]
  - Facial spasm [Unknown]
  - Lymphocyte percentage decreased [Unknown]
  - Hypoaesthesia [Unknown]
  - Decreased vibratory sense [Unknown]
  - Muscle spasticity [Unknown]
  - Abdominal pain upper [Unknown]
  - Back pain [Recovered/Resolved]
  - Musculoskeletal stiffness [Recovering/Resolving]
  - Dysmetria [Unknown]
  - Monocyte percentage increased [Unknown]
  - Hypoglycaemia [Unknown]
  - Romberg test positive [Unknown]

NARRATIVE: CASE EVENT DATE: 20150706
